FAERS Safety Report 14035283 (Version 2)
Quarter: 2017Q4

REPORT INFORMATION
  Report Type: Report from Study
  Country: None (occurrence: US)
  Receive Date: 20171003
  Receipt Date: 20171025
  Transmission Date: 20180321
  Serious: Yes (Death)
  Sender: FDA-Public Use
  Company Number: US-VIFOR (INTERNATIONAL) INC.-VIT-2017-10074

PATIENT
  Age: 42 Year
  Sex: Female
  Weight: 101.06 kg

DRUGS (1)
  1. VELTASSA [Suspect]
     Active Substance: PATIROMER
     Indication: PRODUCT USED FOR UNKNOWN INDICATION
     Dates: start: 20161109

REACTIONS (2)
  - Renal failure [Fatal]
  - Malaise [Unknown]

NARRATIVE: CASE EVENT DATE: 2016
